FAERS Safety Report 23611798 (Version 1)
Quarter: 2024Q1

REPORT INFORMATION
  Report Type: Spontaneous
  Country: NO (occurrence: NO)
  Receive Date: 20240308
  Receipt Date: 20240308
  Transmission Date: 20240410
  Serious: Yes (Hospitalization)
  Sender: FDA-Public Use
  Company Number: None

PATIENT
  Age: 83 Year
  Sex: Female

DRUGS (23)
  1. NEURONTIN [Suspect]
     Active Substance: GABAPENTIN
     Indication: Neuralgia
     Dosage: 600 MILLIGRAM, Q8H (THERE IS NO KNOWN INFORMATION ABOUT THE PATIENT HAVING NEUROPATHIC PAIN)
     Route: 048
  2. NYCOPLUS MAGNESIUM [Concomitant]
     Indication: Restless legs syndrome
     Dosage: UNK
     Route: 065
     Dates: end: 20240212
  3. Nitroglycerin orifarm [Concomitant]
     Indication: Angina pectoris
     Dosage: UNK
     Route: 065
  4. IMOVANE [Concomitant]
     Active Substance: ZOPICLONE
     Indication: Insomnia
     Dosage: 7.5 MILLIGRAM, QD
     Route: 065
  5. ACETAMINOPHEN [Concomitant]
     Active Substance: ACETAMINOPHEN
     Indication: Pain
     Dosage: 1 GRAM, Q6H
     Route: 065
  6. RAMIPRIL [Concomitant]
     Active Substance: RAMIPRIL
     Indication: Hypertension
     Dosage: SUSPECTED THAT RAMIPRIL STARTED FOR HEART FAILURE DUE TO LOW DOSE. CONSIDERED FOR DISCONTINUATION
     Route: 065
  7. ELIQUIS [Concomitant]
     Active Substance: APIXABAN
     Indication: Pulmonary embolism
     Dosage: UNK
     Route: 065
  8. ATROVENT [Concomitant]
     Active Substance: IPRATROPIUM BROMIDE
     Indication: Obstructive airways disorder
     Dosage: UNK
     Route: 065
  9. FENTANYL [Concomitant]
     Active Substance: FENTANYL\FENTANYL CITRATE
     Indication: Pain
     Dosage: Q3D (75 UG/H EVERY 3 DAYS)
     Route: 065
  10. MOVICOL [Concomitant]
     Active Substance: POLYETHYLENE GLYCOL 3350\POTASSIUM CHLORIDE\SODIUM BICARBONATE\SODIUM CHLORIDE
     Indication: Constipation
     Dosage: UNK
     Route: 065
  11. UMECLIDINIUM BROMIDE\VILANTEROL TRIFENATATE [Concomitant]
     Active Substance: UMECLIDINIUM BROMIDE\VILANTEROL TRIFENATATE
     Indication: Obstructive airways disorder
     Dosage: 1 DOSAGE FORM, QD
     Route: 065
  12. BUMETANIDE [Concomitant]
     Active Substance: BUMETANIDE
     Indication: Cardiac failure
     Dosage: HEART FAILURE IN RELATION TO STRESS CARDIOMYOPATHY IN 2017. DOSE REDUCED AND DISCONTINUED.
     Route: 065
  13. POTASSIUM CHLORIDE [Concomitant]
     Active Substance: POTASSIUM CHLORIDE
     Indication: Hypokalaemia
     Dosage: UNK
     Route: 065
  14. ATORVASTATIN [Concomitant]
     Active Substance: ATORVASTATIN
     Indication: Arteriosclerosis coronary artery
     Dosage: 40 MILLIGRAM, QD
     Route: 065
  15. PANTOPRAZOLE SODIUM [Concomitant]
     Active Substance: PANTOPRAZOLE SODIUM
     Indication: Product used for unknown indication
     Dosage: UNK
     Route: 065
  16. Folsyre orifarm [Concomitant]
     Indication: Folate deficiency
     Dosage: UNK
     Route: 065
     Dates: end: 20240212
  17. OXAZEPAM [Concomitant]
     Active Substance: OXAZEPAM
     Indication: Anxiety
     Dosage: UNK
     Route: 065
  18. SODIUM PICOSULFATE [Concomitant]
     Active Substance: SODIUM PICOSULFATE
     Indication: Constipation
     Dosage: UNK
     Route: 065
  19. CALCIUM CARBONATE\CHOLECALCIFEROL [Concomitant]
     Active Substance: CALCIUM CARBONATE\CHOLECALCIFEROL
     Indication: Osteoporosis postmenopausal
     Dosage: 2 DOSAGE FORM, QD
     Route: 065
  20. PREDNISOLONE [Concomitant]
     Active Substance: PREDNISOLONE
     Indication: Polymyalgia rheumatica
     Dosage: UNK
     Route: 065
  21. PROLIA [Concomitant]
     Active Substance: DENOSUMAB
     Indication: Osteoporosis postmenopausal
     Dosage: 60 MILLIGRAM, EVERY 180 DAYS
     Route: 065
  22. METOPROLOL [Concomitant]
     Active Substance: METOPROLOL
     Indication: Angina pectoris
     Dosage: 25 MILLIGRAM, QD
     Route: 065
  23. ALBUTEROL [Concomitant]
     Active Substance: ALBUTEROL
     Indication: Obstructive airways disorder
     Dosage: UNK
     Route: 065

REACTIONS (9)
  - Delirium [Recovered/Resolved]
  - Hypophagia [Recovering/Resolving]
  - Hot flush [Recovering/Resolving]
  - Hypoaesthesia [Recovering/Resolving]
  - Loss of personal independence in daily activities [Recovering/Resolving]
  - Dysphagia [Recovering/Resolving]
  - Chills [Recovering/Resolving]
  - Nausea [Recovered/Resolved]
  - Withdrawal syndrome [Recovering/Resolving]

NARRATIVE: CASE EVENT DATE: 20240202
